FAERS Safety Report 9049800 (Version 4)
Quarter: 2014Q2

REPORT INFORMATION
  Report Type: Spontaneous
  Country: US (occurrence: US)
  Receive Date: 20130205
  Receipt Date: 20140502
  Transmission Date: 20141212
  Serious: Yes (Other)
  Sender: FDA-Public Use
  Company Number: US-009507513-1302USA000878

PATIENT
  Sex: Male

DRUGS (1)
  1. PROPECIA [Suspect]
     Indication: ALOPECIA
     Dosage: 1 MG, QD
     Route: 048
     Dates: start: 19990521, end: 20110811

REACTIONS (24)
  - Surgery [Unknown]
  - Cognitive disorder [Not Recovered/Not Resolved]
  - Muscle atrophy [Unknown]
  - Blood testosterone decreased [Unknown]
  - Anxiety [Recovered/Resolved]
  - Panic attack [Recovered/Resolved]
  - Asthenia [Unknown]
  - Blood cholesterol increased [Unknown]
  - Libido decreased [Unknown]
  - Sexual dysfunction [Not Recovered/Not Resolved]
  - Erectile dysfunction [Unknown]
  - Ejaculation disorder [Unknown]
  - Depression [Recovered/Resolved]
  - Blood triglycerides increased [Unknown]
  - Cyst [Unknown]
  - Muscle rupture [Unknown]
  - Shoulder operation [Unknown]
  - Pleurisy [Unknown]
  - Lesion excision [Unknown]
  - Chest pain [Unknown]
  - Dyspnoea [Unknown]
  - Arthralgia [Unknown]
  - Tremor [Unknown]
  - Chest pain [Unknown]
